FAERS Safety Report 4897434-8 (Version None)
Quarter: 2006Q1

REPORT INFORMATION
  Report Type: 
  Country: None (occurrence: None)
  Receive Date: 20060130
  Receipt Date: 20060130
  Transmission Date: 20060701
  Serious: No
  Sender: FDA-Public Use
  Company Number: None

PATIENT
  Age: 43 Year
  Sex: Male
  Weight: 113.3993 kg

DRUGS (1)
  1. ZICAM COLD REMEDY SWABS ZINCUM GLUCONIUM 2X MATRIXX INITIATIVES INC. [Suspect]
     Indication: NASOPHARYNGITIS
     Dates: start: 20050101, end: 20060101

REACTIONS (1)
  - ANOSMIA [None]
